FAERS Safety Report 7508481-1 (Version None)
Quarter: 2011Q2

REPORT INFORMATION
  Report Type: 
  Country: None (occurrence: None)
  Receive Date: 20110527
  Receipt Date: 20110523
  Transmission Date: 20111010
  Serious: Yes (Other)
  Sender: FDA-Public Use
  Company Number: US-PFIZER INC-2011063602

PATIENT
  Sex: Female
  Weight: 16.78 kg

DRUGS (3)
  1. ZITHROMAX [Suspect]
     Dosage: 2 ML, 1X/DAY
     Route: 048
     Dates: start: 20110311, end: 20110315
  2. ALBUTEROL SULFATE AUTOHALER [Concomitant]
     Dosage: UNK
  3. ZITHROMAX [Suspect]
     Indication: BRONCHITIS
     Dosage: 4 ML, 1X/DAY
     Route: 048
     Dates: start: 20110310, end: 20110310

REACTIONS (1)
  - ELECTROCARDIOGRAM QT PROLONGED [None]
